FAERS Safety Report 25318781 (Version 1)
Quarter: 2025Q2

REPORT INFORMATION
  Report Type: Spontaneous
  Country: US (occurrence: None)
  Receive Date: 20250514
  Receipt Date: 20250514
  Transmission Date: 20250717
  Serious: Yes (Hospitalization)
  Sender: FDA-CTU
  Company Number: None

PATIENT
  Age: 74 Year
  Sex: Male
  Weight: 75 kg

DRUGS (1)
  1. GAMMAGARD [Suspect]
     Active Substance: HUMAN IMMUNOGLOBULIN G
     Indication: Hypogammaglobulinaemia
     Route: 041

REACTIONS (11)
  - Nausea [None]
  - Chills [None]
  - Vomiting [None]
  - Hypersensitivity [None]
  - Infusion related reaction [None]
  - Somnolence [None]
  - Pyrexia [None]
  - Blood pressure increased [None]
  - Oxygen saturation decreased [None]
  - Transfusion-related acute lung injury [None]
  - Human rhinovirus test positive [None]

NARRATIVE: CASE EVENT DATE: 20250511
